FAERS Safety Report 12391578 (Version 3)
Quarter: 2016Q2

REPORT INFORMATION
  Report Type: Spontaneous
  Country: US (occurrence: US)
  Receive Date: 20160521
  Receipt Date: 20160627
  Transmission Date: 20160815
  Serious: Yes (Hospitalization, Other)
  Sender: FDA-Public Use
  Company Number: US-AUROBINDO-AUR-APL-2016-06114

PATIENT
  Age: 20 Year
  Sex: Female
  Weight: 69 kg

DRUGS (3)
  1. OPTIDRIL [Concomitant]
     Indication: CONTRACEPTION
     Dosage: 30 MICROGRAMMES/150 MICROGRAMMES ONCE DAILY
     Route: 048
  2. LAMOTRIGINE ARROW CHEWABLE OR DISPERSIBLE TABLETS 100 MG [Suspect]
     Active Substance: LAMOTRIGINE
     Dosage: 150 MG IN THE MORNING AND 150 MG IN THE EVENING
     Route: 048
     Dates: start: 20160425, end: 20160507
  3. LAMOTRIGINE ARROW CHEWABLE OR DISPERSIBLE TABLETS 100 MG [Suspect]
     Active Substance: LAMOTRIGINE
     Indication: PRODUCT USED FOR UNKNOWN INDICATION
     Dosage: 150 MG IN THE MORNING AND 150 MG IN THE EVENING
     Route: 048
     Dates: start: 20160219

REACTIONS (6)
  - Drug ineffective [Unknown]
  - Off label use [Unknown]
  - Tremor [Recovering/Resolving]
  - Headache [Recovered/Resolved]
  - Epilepsy [Recovered/Resolved]
  - Incorrect dose administered [Unknown]

NARRATIVE: CASE EVENT DATE: 201605
